FAERS Safety Report 6388979-2 (Version None)
Quarter: 2009Q4

REPORT INFORMATION
  Report Type: 
  Country: None (occurrence: None)
  Receive Date: 20091001
  Receipt Date: 20090922
  Transmission Date: 20100525
  Serious: Yes (Other)
  Sender: FDA-Public Use
  Company Number: ADR27862009

PATIENT
  Age: 59 Year
  Sex: Male

DRUGS (4)
  1. RAMIPRIL [Suspect]
     Indication: HYPERTENSION
     Dosage: 2. 5 MG , ORAL
     Route: 048
     Dates: start: 20060307, end: 20070512
  2. BISOPROLOL (5 MG) [Concomitant]
  3. CLOPIDOGREL [Concomitant]
  4. SIMVASTATIN [Concomitant]

REACTIONS (5)
  - ANHEDONIA [None]
  - DECREASED INTEREST [None]
  - DEPRESSED MOOD [None]
  - DEPRESSION [None]
  - LIBIDO DECREASED [None]
